FAERS Safety Report 7814657-6 (Version None)
Quarter: 2011Q4

REPORT INFORMATION
  Report Type: 
  Country: None (occurrence: None)
  Receive Date: 20111014
  Receipt Date: 20110930
  Transmission Date: 20120403
  Serious: Yes (Hospitalization)
  Sender: FDA-Public Use
  Company Number: US-BAYER-2011-082057

PATIENT
  Age: 35 Year
  Sex: Female
  Weight: 97.95 kg

DRUGS (5)
  1. YAZ [Suspect]
     Indication: CONTRACEPTION
     Dosage: UNK
     Dates: start: 20041123, end: 20061206
  2. ATENOLOL [Concomitant]
     Dosage: 25 MG, QD
     Route: 048
  3. IBUPROFEN [Concomitant]
  4. YASMIN [Suspect]
     Indication: CONTRACEPTION
     Dosage: UNK
     Dates: start: 20041123, end: 20051206
  5. YASMIN [Suspect]

REACTIONS (6)
  - GAIT DISTURBANCE [None]
  - INJURY [None]
  - MUSCULAR WEAKNESS [None]
  - CEREBROVASCULAR ACCIDENT [None]
  - HEMIPARESIS [None]
  - PAIN [None]
